APPROVED DRUG PRODUCT: FENOFIBRATE
Active Ingredient: FENOFIBRATE
Strength: 54MG
Dosage Form/Route: TABLET;ORAL
Application: A218548 | Product #001 | TE Code: AB
Applicant: YICHANG HUMANWELL PHARMACEUTICAL CO LTD
Approved: Apr 24, 2024 | RLD: No | RS: No | Type: RX